FAERS Safety Report 24618640 (Version 1)
Quarter: 2024Q4

REPORT INFORMATION
  Report Type: Spontaneous
  Country: US (occurrence: None)
  Receive Date: 20241113
  Receipt Date: 20241113
  Transmission Date: 20250115
  Serious: No
  Sender: Public
  Company Number: None

PATIENT
  Age: 54 Year
  Sex: Female

DRUGS (1)
  1. ZILXI [Suspect]
     Active Substance: MINOCYCLINE HYDROCHLORIDE
     Indication: Rosacea
     Dosage: OTHER QUANTITY: APPLY A THIN LAYER TO ENTIRE FACE ONCE DAILY FOR ROSACEA?
     Dates: start: 202409

REACTIONS (1)
  - Hip arthroplasty [None]
